FAERS Safety Report 13252602 (Version 1)
Quarter: 2017Q1

REPORT INFORMATION
  Report Type: Report from Study
  Country: US (occurrence: US)
  Receive Date: 20170220
  Receipt Date: 20170220
  Transmission Date: 20170428
  Serious: Yes (Other)
  Sender: FDA-Public Use
  Company Number: US-ALEXION PHARMACEUTICALS INC.-A201701491

PATIENT
  Sex: Male

DRUGS (1)
  1. SOLIRIS [Suspect]
     Active Substance: ECULIZUMAB
     Indication: HAEMOLYTIC URAEMIC SYNDROME
     Route: 042

REACTIONS (6)
  - Fall [Unknown]
  - Wrist fracture [Unknown]
  - Mood altered [Unknown]
  - Malaise [Unknown]
  - Laceration [Unknown]
  - Hyperacusis [Unknown]

NARRATIVE: CASE EVENT DATE: 20161229
